FAERS Safety Report 14317874 (Version 1)
Quarter: 2017Q4

REPORT INFORMATION
  Report Type: Spontaneous
  Country: US (occurrence: US)
  Receive Date: 20171221
  Receipt Date: 20171221
  Transmission Date: 20180321
  Serious: Yes (Other)
  Sender: FDA-Public Use
  Company Number: None

PATIENT
  Sex: Male
  Weight: 54 kg

DRUGS (1)
  1. CIPROFLOXACIN. [Suspect]
     Active Substance: CIPROFLOXACIN
     Indication: ACUTE SINUSITIS
     Route: 048
     Dates: start: 20171218, end: 20171220

REACTIONS (3)
  - Psychotic disorder [None]
  - Screaming [None]
  - Acute sinusitis [None]

NARRATIVE: CASE EVENT DATE: 20171220
